FAERS Safety Report 6480529-5 (Version None)
Quarter: 2009Q4

REPORT INFORMATION
  Report Type: 
  Country: None (occurrence: None)
  Receive Date: 20091202
  Receipt Date: 20090922
  Transmission Date: 20100525
  Serious: Yes (Death, Hospitalization, Other)
  Sender: FDA-Public Use
  Company Number: 2009AP003878

PATIENT
  Age: 72 Year
  Sex: Male

DRUGS (3)
  1. AMIODARONE HYDROCHLORIDE [Suspect]
     Dosage: 200 MG;QD
  2. SIMVASTATIN [Concomitant]
  3. GLIPIZIDE [Concomitant]

REACTIONS (6)
  - ASCITES [None]
  - DISEASE COMPLICATION [None]
  - DRUG TOXICITY [None]
  - FATIGUE [None]
  - HEPATIC CIRRHOSIS [None]
  - SPLENOMEGALY [None]
